FAERS Safety Report 5418917-8 (Version None)
Quarter: 2007Q3

REPORT INFORMATION
  Report Type: 
  Country: None (occurrence: None)
  Receive Date: 20070718
  Receipt Date: 20070221
  Transmission Date: 20080115
  Serious: Yes (Hospitalization, Other)
  Sender: FDA-Public Use
  Company Number: 2006086547

PATIENT
  Age: 71 Year
  Sex: Female
  Weight: 95.3 kg

DRUGS (3)
  1. CELEBREX [Suspect]
     Indication: ARTHRALGIA
     Dosage: 200 MG, ONE TO TWO TIMES DAILY
     Route: 048
     Dates: start: 20030114
  2. CELEBREX [Suspect]
     Indication: BACK PAIN
     Dosage: 200 MG, ONE TO TWO TIMES DAILY
     Route: 048
     Dates: start: 20030114
  3. CELEBREX [Suspect]
     Indication: MUSCULOSKELETAL PAIN
     Dosage: 200 MG, ONE TO TWO TIMES DAILY
     Route: 048
     Dates: start: 20030114

REACTIONS (1)
  - CEREBROVASCULAR ACCIDENT [None]
